FAERS Safety Report 7648717-X (Version None)
Quarter: 2011Q3

REPORT INFORMATION
  Report Type: 
  Country: None (occurrence: None)
  Receive Date: 20110801
  Receipt Date: 20110722
  Transmission Date: 20111222
  Serious: Yes (Other)
  Sender: FDA-Public Use
  Company Number: PHHY2011US67167

PATIENT
  Sex: Male

DRUGS (1)
  1. SANDOSTATIN LAR [Suspect]
     Indication: ACROMEGALY
     Dosage: 20 MG, QMO
     Route: 030

REACTIONS (6)
  - HYPERTENSION [None]
  - ANGINA PECTORIS [None]
  - RENAL DISORDER [None]
  - BRONCHITIS CHRONIC [None]
  - HEARING IMPAIRED [None]
  - ASTHMA [None]
